APPROVED DRUG PRODUCT: EFAVIRENZ; EMTRICITABINE; TENOFOVIR DISOPROXIL FUMARATE
Active Ingredient: EFAVIRENZ; EMTRICITABINE; TENOFOVIR DISOPROXIL FUMARATE
Strength: 600MG;200MG;300MG
Dosage Form/Route: TABLET;ORAL
Application: A209061 | Product #001
Applicant: MYLAN PHARMACEUTICALS INC
Approved: Sep 5, 2024 | RLD: No | RS: No | Type: DISCN